FAERS Safety Report 23296225 (Version 2)
Quarter: 2023Q4

REPORT INFORMATION
  Report Type: Spontaneous
  Country: None (occurrence: US)
  Receive Date: 20231214
  Receipt Date: 20231214
  Transmission Date: 20240109
  Serious: Yes (Other)
  Sender: FDA-Public Use
  Company Number: US-Harrow Eye-2149346

PATIENT
  Sex: Female
  Weight: 55 kg

DRUGS (12)
  1. CLOFAZIMINE [Suspect]
     Active Substance: CLOFAZIMINE
     Indication: Mycobacterium chelonae infection
     Route: 048
     Dates: start: 20230222, end: 20230302
  2. DOXYCYCLINE [Suspect]
     Active Substance: DOXYCYCLINE
  3. MOXIFLOXACIN [Suspect]
     Active Substance: MOXIFLOXACIN
  4. FUROSEMIDE [Suspect]
     Active Substance: FUROSEMIDE
  5. AMIODARONE [Concomitant]
     Active Substance: AMIODARONE
     Dates: start: 20221101, end: 20230306
  6. DILTIAZEM [Concomitant]
     Active Substance: DILTIAZEM
  7. EMPAGLIFLOZIN [Concomitant]
     Active Substance: EMPAGLIFLOZIN
  8. APIXABAN [Concomitant]
     Active Substance: APIXABAN
  9. DULOXETINE [Concomitant]
     Active Substance: DULOXETINE
  10. PREDNISONE [Concomitant]
     Active Substance: PREDNISONE
  11. AZITHROMYCIN [Concomitant]
     Active Substance: AZITHROMYCIN
     Route: 048
     Dates: start: 20230222, end: 20230302
  12. AZITHROMYCIN [Concomitant]
     Active Substance: AZITHROMYCIN
     Route: 048
     Dates: start: 20230331

REACTIONS (6)
  - Decreased appetite [Unknown]
  - Drug resistance [Unknown]
  - Nausea [Unknown]
  - Vomiting [Unknown]
  - Drug ineffective [Unknown]
  - Electrocardiogram QT prolonged [Recovered/Resolved]

NARRATIVE: CASE EVENT DATE: 20230301
